FAERS Safety Report 21119680 (Version 1)
Quarter: 2022Q3

REPORT INFORMATION
  Report Type: Spontaneous
  Country: US (occurrence: None)
  Receive Date: 20220721
  Receipt Date: 20220721
  Transmission Date: 20221027
  Serious: No
  Sender: FDA-Public Use
  Company Number: None

PATIENT
  Age: 63 Year
  Sex: Female

DRUGS (1)
  1. PRALUENT [Suspect]
     Active Substance: ALIROCUMAB
     Indication: Hypercholesterolaemia
     Dosage: FREQUENCY : EVERY OTHER WEEK;?OTHER ROUTE : SC INJECTION;?
     Route: 050
     Dates: start: 20220401

REACTIONS (4)
  - Pain in extremity [None]
  - Muscle spasms [None]
  - Pain [None]
  - Sleep disorder [None]

NARRATIVE: CASE EVENT DATE: 20220401
